FAERS Safety Report 9274555 (Version 2)
Quarter: 2013Q3

REPORT INFORMATION
  Report Type: Spontaneous
  Country: FR (occurrence: FR)
  Receive Date: 20130507
  Receipt Date: 20130709
  Transmission Date: 20140515
  Serious: Yes (Death, Other)
  Sender: FDA-Public Use
  Company Number: FR-ROCHE-1221134

PATIENT
  Age: 70 Year
  Sex: Male
  Weight: 60 kg

DRUGS (7)
  1. AVASTIN [Suspect]
     Indication: PRODUCT USED FOR UNKNOWN INDICATION
     Route: 065
  2. PERMIXON [Suspect]
     Indication: PRODUCT USED FOR UNKNOWN INDICATION
     Route: 048
  3. XATRAL [Suspect]
     Indication: PRODUCT USED FOR UNKNOWN INDICATION
     Route: 048
  4. QVAR [Concomitant]
     Route: 055
  5. MOPRAL (FRANCE) [Concomitant]
  6. EFFEXOR [Concomitant]
     Route: 048
  7. LASILIX [Concomitant]
     Route: 042

REACTIONS (6)
  - Dyspnoea [Fatal]
  - Lymphangitis [Unknown]
  - Pulmonary alveolar haemorrhage [Unknown]
  - Haemoptysis [Unknown]
  - Cough [Not Recovered/Not Resolved]
  - Chest pain [Recovering/Resolving]
